FAERS Safety Report 8437142-X (Version None)
Quarter: 2012Q2

REPORT INFORMATION
  Report Type: 
  Country: None (occurrence: None)
  Receive Date: 20120614
  Receipt Date: 20120411
  Transmission Date: 20120825
  Serious: No
  Sender: FDA-Public Use
  Company Number: US-AMGEN-USASP2012019118

PATIENT
  Sex: Female
  Weight: 50.794 kg

DRUGS (2)
  1. PROLIA [Suspect]
     Indication: OSTEOPOROSIS POSTMENOPAUSAL
     Dosage: 60 MG, Q6MO
     Route: 058
     Dates: start: 20110125, end: 20120305
  2. PROLIA [Suspect]

REACTIONS (2)
  - BONE PAIN [None]
  - PAIN [None]
